FAERS Safety Report 5573791-4 (Version None)
Quarter: 2007Q4

REPORT INFORMATION
  Report Type: 
  Country: None (occurrence: None)
  Receive Date: 20071226
  Receipt Date: 20071218
  Transmission Date: 20080405
  Serious: Yes (Hospitalization, Other)
  Sender: FDA-Public Use
  Company Number: BR-ABBOTT-07P-020-0424106-00

PATIENT
  Sex: Male
  Weight: 79 kg

DRUGS (8)
  1. HUMIRA [Suspect]
     Indication: RHEUMATOID ARTHRITIS
     Route: 058
     Dates: start: 20070401, end: 20071101
  2. UNKNOWN ANTIBIOTIC [Suspect]
     Indication: PNEUMONIA
     Dates: start: 20071001
  3. UNKNOWN ANTIBIOTIC [Suspect]
     Indication: SEPSIS
  4. METHOTREXATE [Concomitant]
     Indication: RHEUMATOID ARTHRITIS
     Dates: end: 20071001
  5. UNKNOWN ANTI-INFLAMMATORY [Concomitant]
     Indication: RHEUMATOID ARTHRITIS
     Dates: end: 20071001
  6. CORTISONE ACETATE TAB [Concomitant]
     Indication: RHEUMATOID ARTHRITIS
     Route: 048
  7. UNKNOWN MEDICATION [Concomitant]
     Indication: ANAEMIA
  8. PREDNISONE [Concomitant]
     Indication: DRUG USE FOR UNKNOWN INDICATION

REACTIONS (6)
  - PNEUMONIA [None]
  - RENAL DISORDER [None]
  - RHEUMATOID ARTHRITIS [None]
  - SEPSIS [None]
  - SOMNOLENCE [None]
  - SYNCOPE [None]
